FAERS Safety Report 25316904 (Version 1)
Quarter: 2025Q2

REPORT INFORMATION
  Report Type: Report from Study
  Country: CN (occurrence: None)
  Receive Date: 20250515
  Receipt Date: 20250515
  Transmission Date: 20250716
  Serious: Yes (Hospitalization)
  Sender: ENCUBE ETHICALS
  Company Number: CN-Encube-001819

PATIENT

DRUGS (2)
  1. TACROLIMUS [Suspect]
     Active Substance: TACROLIMUS
     Indication: Product used for unknown indication
  2. TIGECYCLINE [Suspect]
     Active Substance: TIGECYCLINE
     Indication: Product used for unknown indication

REACTIONS (1)
  - Pancreatitis acute [Unknown]
